FAERS Safety Report 6504817-9 (Version None)
Quarter: 2009Q4

REPORT INFORMATION
  Report Type: 
  Country: None (occurrence: None)
  Receive Date: 20091215
  Receipt Date: 20091120
  Transmission Date: 20100525
  Serious: Yes (Other)
  Sender: FDA-Public Use
  Company Number: AE-2009-291

PATIENT
  Age: 84 Year
  Sex: Female

DRUGS (6)
  1. FUROSEMIDE [Suspect]
     Indication: CARDIAC FAILURE
     Dosage: 180MG,TID,ORAL
     Route: 048
     Dates: start: 20090108, end: 20090128
  2. ESPIRONOLACTONE [Suspect]
     Indication: CARDIAC FAILURE
     Dosage: 25MG,QD,ORAL
     Route: 048
     Dates: start: 20090108, end: 20090128
  3. ALLOPURINOL MUNDOGEN 100MG TABLETS [Suspect]
     Indication: HYPERURICAEMIA
     Dosage: 100MG,QD,ORAL
     Route: 048
     Dates: start: 20090108, end: 20090128
  4. DIGOXIN [Concomitant]
  5. FUROSEMIDE [Concomitant]
  6. ACETYLSALICYLIC ACID [Concomitant]

REACTIONS (1)
  - TOXIC SKIN ERUPTION [None]
